FAERS Safety Report 5508367-8 (Version None)
Quarter: 2007Q4

REPORT INFORMATION
  Report Type: 
  Country: None (occurrence: None)
  Receive Date: 20071106
  Receipt Date: 20071031
  Transmission Date: 20080405
  Serious: Yes (Hospitalization)
  Sender: FDA-Public Use
  Company Number: JP-MERCK-0707USA03075

PATIENT
  Age: 57 Year
  Sex: Male

DRUGS (9)
  1. PEPCID RPD [Suspect]
     Indication: GASTRITIS
     Route: 048
     Dates: start: 20070404, end: 20070717
  2. ATELEC [Suspect]
     Indication: HYPERTENSION
     Route: 048
     Dates: start: 20070323, end: 20070717
  3. DEPAS [Suspect]
     Indication: ANXIETY DISORDER
     Route: 048
     Dates: start: 20070606, end: 20070717
  4. AMARYL [Suspect]
     Indication: DIABETES MELLITUS
     Route: 048
     Dates: start: 20070511, end: 20070717
  5. BLOPRESS [Suspect]
     Indication: HYPERTENSION
     Route: 048
     Dates: start: 20070323, end: 20070717
  6. PAXIL [Suspect]
     Indication: DEPRESSION
     Route: 048
     Dates: start: 20070606, end: 20070717
  7. ACTOS [Suspect]
     Indication: DIABETES MELLITUS
     Route: 048
     Dates: start: 20070511, end: 20070717
  8. MIGLITOL [Suspect]
     Indication: DIABETES MELLITUS
     Route: 048
     Dates: start: 20070410, end: 20070717
  9. ASPIRIN [Suspect]
     Indication: CEREBRAL INFARCTION
     Route: 048
     Dates: start: 20070322, end: 20070717

REACTIONS (1)
  - LIVER DISORDER [None]
